FAERS Safety Report 10411109 (Version 1)
Quarter: 2014Q3

REPORT INFORMATION
  Report Type: Report from Study
  Country: BR (occurrence: BR)
  Receive Date: 20140826
  Receipt Date: 20140826
  Transmission Date: 20150326
  Serious: Yes (Hospitalization, Other)
  Sender: FDA-Public Use
  Company Number: PHHY2014BR106374

PATIENT
  Age: 30 Year
  Sex: Female

DRUGS (8)
  1. TACROLIMUS. [Suspect]
     Active Substance: TACROLIMUS
     Indication: RENAL TRANSPLANT
     Dosage: 10 MG/DAY
  2. METHYLPREDNISOLONE [Suspect]
     Active Substance: METHYLPREDNISOLONE
     Dosage: UNK UKN, UNK
  3. TACROLIMUS. [Suspect]
     Active Substance: TACROLIMUS
     Dosage: 1+0.5MG
  4. METHYLPREDNISOLONE [Suspect]
     Active Substance: METHYLPREDNISOLONE
     Dosage: UNK UKN, UNK
  5. MYCOPHENOLIC ACID [Suspect]
     Active Substance: MYCOPHENOLIC ACID
     Dosage: 720+360 MG
  6. PREDNISONE. [Suspect]
     Active Substance: PREDNISONE
     Dosage: 5 UNK, UNK
  7. MYCOPHENOLIC ACID [Suspect]
     Active Substance: MYCOPHENOLIC ACID
     Indication: RENAL TRANSPLANT
     Dosage: UNK UKN, UNK
  8. PREDNISONE. [Suspect]
     Active Substance: PREDNISONE
     Dosage: 20 MG/DAY

REACTIONS (15)
  - Urethritis noninfective [Unknown]
  - Hydronephrosis [Unknown]
  - Kidney fibrosis [Unknown]
  - Leukopenia [Unknown]
  - Complications of transplanted kidney [Unknown]
  - Urinary tract infection fungal [Unknown]
  - Anaemia [Unknown]
  - Renal tubular atrophy [Unknown]
  - Tubulointerstitial nephritis [Unknown]
  - Herpes zoster [Unknown]
  - Chronic allograft nephropathy [Unknown]
  - Platelet count decreased [Unknown]
  - Urethral stenosis [Unknown]
  - Glomerulonephritis acute [Unknown]
  - Cataract [Unknown]
